FAERS Safety Report 16656172 (Version 1)
Quarter: 2019Q3

REPORT INFORMATION
  Report Type: Spontaneous
  Country: ES (occurrence: ES)
  Receive Date: 20190801
  Receipt Date: 20190801
  Transmission Date: 20191004
  Serious: Yes (Other)
  Sender: FDA-Public Use
  Company Number: ES-JNJFOC-20190622901

PATIENT
  Age: 81 Year
  Sex: Male

DRUGS (6)
  1. VITAMIN D                          /00107901/ [Concomitant]
     Active Substance: ERGOCALCIFEROL
     Indication: PRODUCT USED FOR UNKNOWN INDICATION
     Route: 065
  2. ABIRATERONE ACETATE. [Suspect]
     Active Substance: ABIRATERONE ACETATE
     Indication: PROSTATE CANCER METASTATIC
     Dosage: TREATMENT APPLICATION IN /APR/2015
     Route: 048
     Dates: start: 20150525
  3. PREDNISOLONE. [Concomitant]
     Active Substance: PREDNISOLONE
     Indication: PRODUCT USED FOR UNKNOWN INDICATION
     Route: 065
  4. SEGURIL [Suspect]
     Active Substance: FUROSEMIDE
     Indication: URINARY RETENTION
     Route: 065
     Dates: start: 201407
  5. CALCIUM [Concomitant]
     Active Substance: CALCIUM
     Indication: PRODUCT USED FOR UNKNOWN INDICATION
     Route: 065
     Dates: start: 2011
  6. REPAGLINIDE. [Concomitant]
     Active Substance: REPAGLINIDE
     Indication: TYPE 2 DIABETES MELLITUS
     Route: 065
     Dates: start: 2011

REACTIONS (2)
  - Oedema peripheral [Recovered/Resolved]
  - Enterovesical fistula [Recovered/Resolved]

NARRATIVE: CASE EVENT DATE: 201601
